FAERS Safety Report 18684932 (Version 3)
Quarter: 2021Q2

REPORT INFORMATION
  Report Type: Report from Study
  Country: GB (occurrence: GB)
  Receive Date: 20201230
  Receipt Date: 20210630
  Transmission Date: 20210717
  Serious: Yes (Other)
  Sender: FDA-Public Use
  Company Number: GB-MYLANLABS-2019M1099886

PATIENT
  Age: 73 Year
  Sex: Female

DRUGS (48)
  1. ANASTROZOLE. [Suspect]
     Active Substance: ANASTROZOLE
     Indication: BREAST CANCER METASTATIC
     Dosage: 1 MILLIGRAM, QD
     Route: 048
     Dates: start: 20161012
  2. DOCETAXEL. [Suspect]
     Active Substance: DOCETAXEL
     Indication: BREAST CANCER METASTATIC
     Dosage: 140 MILLIGRAM, QW
     Route: 042
     Dates: start: 20160701, end: 20160902
  3. DOCETAXEL. [Suspect]
     Active Substance: DOCETAXEL
     Dosage: 10 MILLIGRAM, Q3W
     Route: 042
     Dates: start: 20160516, end: 20160610
  4. HYPROMELLOSE [Concomitant]
     Active Substance: HYPROMELLOSES
     Dosage: UNK
     Route: 047
     Dates: start: 20160831
  5. ONDANSETRON [Concomitant]
     Active Substance: ONDANSETRON
     Indication: NAUSEA
     Dosage: 4 MILLIGRAM
     Route: 048
     Dates: start: 20161012, end: 20161109
  6. LOSARTAN. [Concomitant]
     Active Substance: LOSARTAN
     Indication: PRODUCT USED FOR UNKNOWN INDICATION
     Dosage: 50 MILLIGRAM, QD
     Route: 048
  7. TRASTUZUMAB. [Suspect]
     Active Substance: TRASTUZUMAB
     Dosage: 504 MILLIGRAM, Q3W
     Route: 041
     Dates: start: 20160902, end: 20160902
  8. TRASTUZUMAB. [Suspect]
     Active Substance: TRASTUZUMAB
     Dosage: 504 MILLIGRAM, Q3W
     Route: 041
     Dates: start: 20170522, end: 20180219
  9. PERTUZUMAB. [Suspect]
     Active Substance: PERTUZUMAB
     Indication: BREAST CANCER METASTATIC
     Dosage: UNK
     Route: 042
     Dates: start: 20160516, end: 20160610
  10. DENOSUMAB [Concomitant]
     Active Substance: DENOSUMAB
     Indication: PRODUCT USED FOR UNKNOWN INDICATION
     Dosage: UNK 6 WEEKLY
     Route: 058
     Dates: start: 20160706
  11. TRASTUZUMAB. [Suspect]
     Active Substance: TRASTUZUMAB
     Dosage: 504 MILLIGRAM
     Route: 041
     Dates: start: 20190610, end: 20190902
  12. PERTUZUMAB. [Suspect]
     Active Substance: PERTUZUMAB
     Dosage: 420 MILLIGRAM, Q3W
     Route: 042
     Dates: start: 20160701
  13. CHLORPHENAMINE [Concomitant]
     Active Substance: CHLORPHENIRAMINE MALEATE
     Indication: PRODUCT USED FOR UNKNOWN INDICATION
     Dosage: 10 MILLIGRAM, QW (3 WEEKLY WITH DOCETAXEL)
     Route: 042
     Dates: start: 20160701, end: 20160902
  14. DIFFLAM [Concomitant]
     Dosage: 10 MILLILITER, 0.25 DAY
     Route: 048
     Dates: start: 20160701
  15. LOPERAMIDE [Concomitant]
     Active Substance: LOPERAMIDE
     Indication: DIARRHOEA
     Dosage: UNK
     Route: 048
     Dates: start: 20160831, end: 20161012
  16. ONDANSETRON [Concomitant]
     Active Substance: ONDANSETRON
     Dosage: 4 MILLIGRAM
     Route: 048
     Dates: start: 20161012
  17. HYDROCORTISONE. [Concomitant]
     Active Substance: HYDROCORTISONE
     Dosage: 100 MILLIGRAM
     Route: 042
     Dates: start: 20160701
  18. ADCAL D3 [Concomitant]
     Active Substance: CALCIUM CARBONATE\CHOLECALCIFEROL
     Indication: PRODUCT USED FOR UNKNOWN INDICATION
     Dosage: UNK UNK, QD
     Route: 048
     Dates: start: 20161012
  19. TRASTUZUMAB. [Suspect]
     Active Substance: TRASTUZUMAB
     Dosage: 493.5 MILLIGRAM, Q3W
     Route: 041
     Dates: start: 20160923, end: 20160923
  20. HYDROCORTISONE. [Concomitant]
     Active Substance: HYDROCORTISONE
     Indication: PRODUCT USED FOR UNKNOWN INDICATION
     Dosage: 100 MILLIGRAM
     Route: 042
     Dates: start: 20160701, end: 20160902
  21. DOXYCYCLINE. [Concomitant]
     Active Substance: DOXYCYCLINE
     Dosage: UNK
     Route: 048
     Dates: start: 201708
  22. TRASTUZUMAB. [Suspect]
     Active Substance: TRASTUZUMAB
     Indication: BREAST CANCER METASTATIC
     Dosage: 1 DOSAGE FORM, Q3W
     Route: 041
     Dates: start: 20160516, end: 20160610
  23. TRASTUZUMAB. [Suspect]
     Active Substance: TRASTUZUMAB
     Dosage: 483 MILLIGRAM, Q3W
     Route: 041
     Dates: start: 20161018, end: 20170428
  24. TRASTUZUMAB. [Suspect]
     Active Substance: TRASTUZUMAB
     Dosage: 546 MILLIGRAM, Q3W
     Route: 041
     Dates: start: 20180521, end: 20180903
  25. TRASTUZUMAB. [Suspect]
     Active Substance: TRASTUZUMAB
     Dosage: 588 MILLIGRAM, Q3W
     Route: 042
     Dates: start: 20191015
  26. TRASTUZUMAB. [Suspect]
     Active Substance: TRASTUZUMAB
     Dosage: 588 MILLIGRAM
     Route: 042
     Dates: start: 20180924, end: 20190520
  27. TRASTUZUMAB. [Suspect]
     Active Substance: TRASTUZUMAB
     Dosage: UNK
     Route: 042
     Dates: start: 20191015
  28. TAXOTERE [Suspect]
     Active Substance: DOCETAXEL
     Dosage: 140 MILLIGRAM, Q3W
     Route: 042
     Dates: start: 20160701, end: 20160902
  29. METOCLOPRAMIDE. [Concomitant]
     Active Substance: METOCLOPRAMIDE
     Dosage: UNK
     Route: 048
     Dates: start: 20160701
  30. TRASTUZUMAB. [Suspect]
     Active Substance: TRASTUZUMAB
     Dosage: 525 MILLIGRAM, Q3W
     Route: 041
     Dates: start: 20160701, end: 20160812
  31. TRASTUZUMAB. [Suspect]
     Active Substance: TRASTUZUMAB
     Dosage: 1 DOSAGE FORM, Q3W
     Route: 041
     Dates: start: 20180312, end: 20180430
  32. ONTRUZANT [Suspect]
     Active Substance: TRASTUZUMAB-DTTB
     Indication: PRODUCT USED FOR UNKNOWN INDICATION
     Dosage: 588 MILLIGRAM, Q3W
     Route: 042
     Dates: start: 20180924
  33. TAXOTERE [Suspect]
     Active Substance: DOCETAXEL
     Indication: PRODUCT USED FOR UNKNOWN INDICATION
     Dosage: 1 DOSAGE FORM, Q3W
     Route: 042
     Dates: start: 20160516, end: 20160610
  34. METOCLOPRAMIDE. [Concomitant]
     Active Substance: METOCLOPRAMIDE
     Indication: PRODUCT USED FOR UNKNOWN INDICATION
     Dosage: UNK
     Route: 048
     Dates: start: 20160701, end: 20160902
  35. DIFFLAM [Concomitant]
     Indication: PRODUCT USED FOR UNKNOWN INDICATION
     Dosage: 10 MILLILITER, QD
     Route: 048
     Dates: start: 20160701, end: 20160902
  36. LOPERAMIDE [Concomitant]
     Active Substance: LOPERAMIDE
     Dosage: UNK
     Route: 048
     Dates: start: 20160831
  37. PIRITON [Concomitant]
     Active Substance: CHLORPHENIRAMINE MALEATE
     Dosage: UNK
     Route: 061
     Dates: start: 20180815
  38. ANASTROZOLE MYLAN [Suspect]
     Active Substance: ANASTROZOLE
     Indication: PRODUCT USED FOR UNKNOWN INDICATION
     Dosage: 1 DOSAGE FORM, QD (CUMULATIVE DOSE TO FIRST REACTION: 1027.0 MG),
     Route: 048
     Dates: start: 20161012
  39. TRASTUZUMAB. [Suspect]
     Active Substance: TRASTUZUMAB
     Dosage: 588 MILLIGRAM
     Route: 041
     Dates: start: 20180924, end: 20190520
  40. TRASTUZUMAB. [Suspect]
     Active Substance: TRASTUZUMAB
     Dosage: 1525 MILLIGRAM, Q3W
     Route: 041
     Dates: start: 20180312, end: 20180430
  41. TRASTUZUMAB. [Suspect]
     Active Substance: TRASTUZUMAB
     Dosage: UNK UNK, Q3W
     Route: 042
     Dates: start: 20160516, end: 20160610
  42. LOSEC [Concomitant]
     Active Substance: OMEPRAZOLE
     Indication: PRODUCT USED FOR UNKNOWN INDICATION
     Dosage: 10 MILLIGRAM, QD
     Route: 048
  43. HYPROMELLOSE [Concomitant]
     Active Substance: HYPROMELLOSES
     Indication: EYE PAIN
     Dosage: UNK
     Route: 047
     Dates: start: 20160831, end: 20161012
  44. SERTRALINE [Concomitant]
     Active Substance: SERTRALINE HYDROCHLORIDE
     Indication: PRODUCT USED FOR UNKNOWN INDICATION
     Dosage: 50 MILLIGRAM, QD
     Route: 048
  45. DOXYCYCLINE. [Concomitant]
     Active Substance: DOXYCYCLINE
     Indication: LOWER RESPIRATORY TRACT INFECTION
     Dosage: UNK, QD
     Route: 048
     Dates: start: 201708
  46. TRASTUZUMAB. [Suspect]
     Active Substance: TRASTUZUMAB
     Dosage: 483 MILLIGRAM, Q3W
     Route: 042
     Dates: start: 20161018, end: 20170428
  47. CHLORPHENAMINE [Concomitant]
     Active Substance: CHLORPHENIRAMINE MALEATE
     Dosage: 10 MILLIGRAM, Q3W (3 WEEKLY WITH DOCETAXEL)
     Route: 042
     Dates: start: 20160701
  48. PIRITON [Concomitant]
     Active Substance: CHLORPHENIRAMINE MALEATE
     Indication: PRURITUS
     Dosage: UNK
     Route: 047
     Dates: start: 20180815

REACTIONS (1)
  - Cardiac failure [Recovered/Resolved]

NARRATIVE: CASE EVENT DATE: 20190805
